FAERS Safety Report 15993741 (Version 1)
Quarter: 2019Q1

REPORT INFORMATION
  Report Type: Spontaneous
  Country: US (occurrence: US)
  Receive Date: 20190222
  Receipt Date: 20190222
  Transmission Date: 20190418
  Serious: Yes (Hospitalization)
  Sender: FDA-Public Use
  Company Number: US-JNJFOC-20190210016

PATIENT
  Sex: Male

DRUGS (1)
  1. INVEGA SUSTENNA [Suspect]
     Active Substance: PALIPERIDONE PALMITATE
     Indication: SCHIZOAFFECTIVE DISORDER DEPRESSIVE TYPE
     Route: 030
     Dates: start: 20180601, end: 20180913

REACTIONS (3)
  - Breast enlargement [Unknown]
  - Erectile dysfunction [Unknown]
  - Libido decreased [Unknown]

NARRATIVE: CASE EVENT DATE: 2018
